FAERS Safety Report 18107144 (Version 1)
Quarter: 2020Q3

REPORT INFORMATION
  Report Type: Report from Study
  Country: US (occurrence: US)
  Receive Date: 20200803
  Receipt Date: 20200803
  Transmission Date: 20201103
  Serious: Yes (Other)
  Sender: FDA-Public Use
  Company Number: US-MYLANLABS-2019M1086645

PATIENT
  Age: 29 Year
  Sex: Female
  Weight: 86 kg

DRUGS (1)
  1. GLATIRAMER ACETATE INJECTION [Suspect]
     Active Substance: GLATIRAMER ACETATE
     Indication: RELAPSING-REMITTING MULTIPLE SCLEROSIS
     Dosage: 40 MILLIGRAM, 3XW (THREE TIMES A WEEK)
     Route: 058
     Dates: start: 20190906, end: 20200622

REACTIONS (13)
  - Injection site bruising [Unknown]
  - Incorrect dose administered [Unknown]
  - Drug ineffective [Unknown]
  - Multiple sclerosis [Unknown]
  - Injection site haemorrhage [Unknown]
  - Injection site hypertrophy [Unknown]
  - Injection site pruritus [Recovered/Resolved]
  - Dysmenorrhoea [Recovering/Resolving]
  - Anxiety [Recovered/Resolved]
  - Injection site extravasation [Not Recovered/Not Resolved]
  - Injection site erythema [Recovered/Resolved]
  - Injection site mass [Recovered/Resolved]
  - Ear discomfort [Recovered/Resolved]

NARRATIVE: CASE EVENT DATE: 20190906
